FAERS Safety Report 5034895-8 (Version None)
Quarter: 2006Q2

REPORT INFORMATION
  Report Type: 
  Country: None (occurrence: None)
  Receive Date: 20060623
  Receipt Date: 20060623
  Transmission Date: 20061013
  Serious: Yes (Hospitalization)
  Sender: FDA-Public Use
  Company Number: None

PATIENT
  Age: 53 Year
  Sex: Male
  Weight: 91.6 kg

DRUGS (3)
  1. PREDNISONE [Suspect]
     Indication: HEPATITIS C
     Dosage: 75 MG QD PO
     Route: 048
  2. PREDNISONE [Suspect]
     Indication: THROMBOCYTOPENIA
     Dosage: 75 MG QD PO
     Route: 048
  3. PEG-INTERON [Suspect]
     Dosage: 135MCG   WEEKLY   SQ
     Route: 058

REACTIONS (14)
  - ABDOMINAL DISTENSION [None]
  - ANAEMIA [None]
  - ASCITES [None]
  - DYSPNOEA EXERTIONAL [None]
  - FLUID OVERLOAD [None]
  - HYPOKALAEMIA [None]
  - HYPOPERFUSION [None]
  - METABOLIC ACIDOSIS [None]
  - OEDEMA PERIPHERAL [None]
  - PANCREATITIS [None]
  - RECTAL HAEMORRHAGE [None]
  - RENAL FAILURE ACUTE [None]
  - THROMBOCYTOPENIA [None]
  - WEIGHT INCREASED [None]
